FAERS Safety Report 8017712-3 (Version None)
Quarter: 2012Q1

REPORT INFORMATION
  Report Type: 
  Country: None (occurrence: None)
  Receive Date: 20120103
  Receipt Date: 20111227
  Transmission Date: 20120608
  Serious: No
  Sender: FDA-Public Use
  Company Number: US-PFIZER INC-2011313560

PATIENT
  Sex: Female

DRUGS (2)
  1. ACETAMINOPHEN [Suspect]
     Indication: PYREXIA
     Dosage: UNK
  2. CHILDREN'S ADVIL [Suspect]
     Indication: PYREXIA
     Dosage: UNK

REACTIONS (2)
  - PYREXIA [None]
  - PRURITUS GENERALISED [None]
